FAERS Safety Report 4557782-8 (Version None)
Quarter: 2005Q1

REPORT INFORMATION
  Report Type: 
  Country: None (occurrence: None)
  Receive Date: 20050118
  Receipt Date: 20050110
  Transmission Date: 20050727
  Serious: Yes (Other)
  Sender: FDA-Public Use
  Company Number: FRWYE328410JAN05

PATIENT
  Sex: Female

DRUGS (1)
  1. EFFEXOR [Suspect]
     Indication: MAJOR DEPRESSION
     Dosage: 300 MG DAILY WITH ATTEMPTS OF DOSAGE DECREASE ORAL
     Route: 048
     Dates: end: 20020101

REACTIONS (4)
  - DISEASE RECURRENCE [None]
  - DRUG DEPENDENCE [None]
  - DRUG WITHDRAWAL SYNDROME [None]
  - MAJOR DEPRESSION [None]
